FAERS Safety Report 6168962-2 (Version None)
Quarter: 2009Q2

REPORT INFORMATION
  Report Type: 
  Country: None (occurrence: None)
  Receive Date: 20090427
  Receipt Date: 20090416
  Transmission Date: 20091009
  Serious: Yes (Other)
  Sender: FDA-Public Use
  Company Number: MX-ELI_LILLY_AND_COMPANY-MX200902002900

PATIENT
  Age: 38 Year
  Sex: Male
  Weight: 65 kg

DRUGS (5)
  1. HUMALOG MIX 75/25 [Suspect]
     Indication: TYPE 1 DIABETES MELLITUS
     Dosage: 28 IU, EACH MORNING
     Route: 058
  2. HUMALOG MIX 75/25 [Suspect]
     Dosage: 11 IU, EACH EVENING
     Route: 058
  3. ZESTRIL [Concomitant]
     Indication: RENAL DISORDER
     Dosage: 2.5 MG, EACH MORNING
     Route: 065
  4. CRESTOR [Concomitant]
     Indication: BLOOD TRIGLYCERIDES
     Dosage: UNK UNK, DAILY (1/D)
     Route: 065
  5. GLUCOBAY [Concomitant]
     Indication: PROPHYLAXIS
     Dosage: UNK UNK, OTHER
     Route: 065

REACTIONS (3)
  - HYPERGLYCAEMIA [None]
  - HYPOGLYCAEMIA [None]
  - LOSS OF CONSCIOUSNESS [None]
